FAERS Safety Report 5258720-5 (Version None)
Quarter: 2007Q1

REPORT INFORMATION
  Report Type: 
  Country: None (occurrence: None)
  Receive Date: 20070305
  Receipt Date: 20070222
  Transmission Date: 20070707
  Serious: Yes (Hospitalization)
  Sender: FDA-Public Use
  Company Number: 2006P1000293

PATIENT
  Age: 60 Year
  Sex: Male
  Weight: 75 kg

DRUGS (6)
  1. RETEPLASE (RETEPLASE) [Suspect]
     Indication: ACUTE MYOCARDIAL INFARCTION
     Dosage: IV
     Route: 042
     Dates: start: 20051230, end: 20051230
  2. ABCIXIMAB (ABCIXIMAB) [Suspect]
     Indication: ACUTE MYOCARDIAL INFARCTION
     Dosage: IV
     Route: 042
     Dates: start: 20051230, end: 20051230
  3. CLEXANE [Concomitant]
  4. ACETYLSALICYLIC ACID SRT [Concomitant]
  5. BISOPROLOL [Concomitant]
  6. SIMVASTATIN [Concomitant]

REACTIONS (3)
  - CORONARY ARTERY STENOSIS [None]
  - RENAL FAILURE ACUTE [None]
  - STAPHYLOCOCCAL SEPSIS [None]
